FAERS Safety Report 5595727-2 (Version None)
Quarter: 2008Q1

REPORT INFORMATION
  Report Type: 
  Country: None (occurrence: None)
  Receive Date: 20080118
  Receipt Date: 20080117
  Transmission Date: 20080703
  Serious: Yes (Other)
  Sender: FDA-Public Use
  Company Number: A0703849A

PATIENT
  Age: 53 Year
  Sex: Female
  Weight: 106.4 kg

DRUGS (10)
  1. ALLI [Suspect]
     Indication: WEIGHT LOSS DIET
     Route: 048
     Dates: start: 20071101
  2. UNSPECIFIED MEDICATION [Suspect]
     Indication: MULTIPLE SCLEROSIS
     Route: 065
  3. IBUPROFEN [Concomitant]
     Dosage: 800MG THREE TIMES PER DAY
  4. HYDROCHLOROTHIAZIDE [Concomitant]
  5. LEVOTHYROXINE SODIUM [Concomitant]
  6. RELPAX [Concomitant]
  7. SEROQUEL [Concomitant]
  8. CLONAZEPAM [Concomitant]
  9. LIPITOR [Concomitant]
  10. METHOCARBAMOL [Concomitant]

REACTIONS (12)
  - ANAL HAEMORRHAGE [None]
  - DRUG INTERACTION [None]
  - GASTROINTESTINAL DISORDER [None]
  - GASTROINTESTINAL PAIN [None]
  - HAEMATOCHEZIA [None]
  - HAEMORRHOIDAL HAEMORRHAGE [None]
  - HAEMORRHOIDS [None]
  - KIDNEY INFECTION [None]
  - RECTAL HAEMORRHAGE [None]
  - RENAL PAIN [None]
  - URINE ABNORMALITY [None]
  - URINE ODOUR ABNORMAL [None]
